FAERS Safety Report 10761462 (Version 1)
Quarter: 2015Q1

REPORT INFORMATION
  Report Type: Spontaneous
  Country: US (occurrence: None)
  Receive Date: 20150203
  Receipt Date: 20150203
  Transmission Date: 20150721
  Serious: Yes (Hospitalization)
  Sender: FDA-Public Use
  Company Number: None

PATIENT
  Sex: Male
  Weight: 72.5 kg

DRUGS (2)
  1. ENOXAPARIN [Suspect]
     Active Substance: ENOXAPARIN
     Route: 058
     Dates: start: 20150107, end: 20150130
  2. ENOXAPARIN [Suspect]
     Active Substance: ENOXAPARIN
     Indication: KNEE OPERATION
     Route: 058
     Dates: start: 20150107, end: 20150130

REACTIONS (1)
  - Gastric haemorrhage [None]

NARRATIVE: CASE EVENT DATE: 20150130
